FAERS Safety Report 19062929 (Version 1)
Quarter: 2021Q1

REPORT INFORMATION
  Report Type: Spontaneous
  Country: US (occurrence: US)
  Receive Date: 20210326
  Receipt Date: 20210326
  Transmission Date: 20210420
  Serious: No
  Sender: FDA-Public Use
  Company Number: None

PATIENT
  Age: 84 Year
  Sex: Female
  Weight: 49.5 kg

DRUGS (7)
  1. OCUVITE [Concomitant]
     Active Substance: VITAMINS
  2. METOPROLOL TARTRATE. [Concomitant]
     Active Substance: METOPROLOL TARTRATE
  3. ATORVASTATIN [Concomitant]
     Active Substance: ATORVASTATIN
  4. HYDROXYUREA. [Concomitant]
     Active Substance: HYDROXYUREA
  5. MELATONIN [Concomitant]
     Active Substance: MELATONIN
  6. CITRICAL + D3 [Concomitant]
  7. JAKAFI [Suspect]
     Active Substance: RUXOLITINIB
     Indication: MYELOFIBROSIS
     Route: 048

REACTIONS (2)
  - Neoplasm malignant [None]
  - Disease recurrence [None]
